FAERS Safety Report 14943893 (Version 3)
Quarter: 2018Q4

REPORT INFORMATION
  Report Type: Report from Study
  Country: None (occurrence: US)
  Receive Date: 20180528
  Receipt Date: 20181112
  Transmission Date: 20190204
  Serious: Yes (Hospitalization, Other)
  Sender: FDA-Public Use
  Company Number: US-ABBVIE-18K-163-2272529-00

PATIENT
  Age: 54 Year
  Sex: Female

DRUGS (3)
  1. ZANAFLEX [Suspect]
     Active Substance: TIZANIDINE HYDROCHLORIDE
     Indication: PRODUCT USED FOR UNKNOWN INDICATION
     Route: 065
  2. HUMIRA [Suspect]
     Active Substance: ADALIMUMAB
     Indication: PSORIASIS
     Route: 058
  3. HUMIRA [Suspect]
     Active Substance: ADALIMUMAB
     Route: 058

REACTIONS (21)
  - Crying [Unknown]
  - Blood pressure decreased [Unknown]
  - Drug ineffective [Not Recovered/Not Resolved]
  - Pain [Unknown]
  - Psoriasis [Recovering/Resolving]
  - Sensitivity to weather change [Unknown]
  - Fall [Unknown]
  - Psoriasis [Recovering/Resolving]
  - Dizziness [Unknown]
  - Loss of consciousness [Recovering/Resolving]
  - Memory impairment [Unknown]
  - Family stress [Unknown]
  - Neuropathy peripheral [Unknown]
  - Weight fluctuation [Unknown]
  - Adverse food reaction [Recovering/Resolving]
  - Depression [Unknown]
  - Ankle fracture [Unknown]
  - Diabetes mellitus [Unknown]
  - Psoriasis [Unknown]
  - Peripheral swelling [Unknown]
  - Arthralgia [Unknown]

NARRATIVE: CASE EVENT DATE: 201802
